FAERS Safety Report 7545279-2 (Version None)
Quarter: 2011Q2

REPORT INFORMATION
  Report Type: 
  Country: None (occurrence: None)
  Receive Date: 20110524
  Receipt Date: 20110211
  Transmission Date: 20111010
  Serious: No
  Sender: FDA-Public Use
  Company Number: 027400

PATIENT
  Sex: Male

DRUGS (6)
  1. PREDNISONE [Concomitant]
  2. PHENERGAN /00033001/ [Concomitant]
  3. PRILOSEC [Concomitant]
  4. TRAMADOL HCL [Concomitant]
  5. CIMZIA [Suspect]
     Dosage: (200 MG 1X/2 WEEKS, 2 SHOTS SUBCUTANEOUS)
     Route: 058
     Dates: start: 20110112
  6. VITAMIN D [Concomitant]

REACTIONS (4)
  - INJECTION SITE HAEMORRHAGE [None]
  - INJECTION SITE PAIN [None]
  - INJECTION SITE HAEMATOMA [None]
  - NEEDLE ISSUE [None]
